FAERS Safety Report 9324668 (Version 1)
Quarter: 2013Q2

REPORT INFORMATION
  Report Type: Spontaneous
  Country: JP (occurrence: JP)
  Receive Date: 20130603
  Receipt Date: 20130603
  Transmission Date: 20140414
  Serious: Yes (Hospitalization)
  Sender: FDA-Public Use
  Company Number: JP-GLAXOSMITHKLINE-B0879318A

PATIENT
  Age: 64 Year
  Sex: Male

DRUGS (7)
  1. LAMICTAL [Suspect]
     Indication: DEPRESSIVE SYMPTOM
     Dosage: 25MG PER DAY
     Route: 048
     Dates: start: 20130220, end: 20130223
  2. LAMICTAL [Suspect]
     Indication: DEPRESSIVE SYMPTOM
     Dosage: 50MG PER DAY
     Route: 048
     Dates: start: 20130224, end: 20130307
  3. LAMICTAL [Suspect]
     Indication: DEPRESSIVE SYMPTOM
     Dosage: 50MG TWICE PER DAY
     Route: 048
     Dates: start: 20130308, end: 20130325
  4. ABILIFY [Concomitant]
     Indication: DEPRESSIVE SYMPTOM
     Dosage: 3MG TWICE PER DAY
     Route: 048
     Dates: start: 20130220, end: 20130227
  5. BAYASPIRIN [Concomitant]
     Indication: CEREBRAL INFARCTION
     Dosage: 100MG PER DAY
     Route: 048
     Dates: start: 20130220, end: 20130227
  6. ATELEC [Concomitant]
     Indication: HYPERTENSION
     Dosage: 5MG PER DAY
     Route: 048
  7. NOCBIN [Concomitant]
     Route: 048
     Dates: start: 20130227, end: 20130318

REACTIONS (7)
  - Toxic skin eruption [Unknown]
  - Rash [Recovering/Resolving]
  - Pyrexia [Recovered/Resolved]
  - Erythema [Unknown]
  - Pruritus [Unknown]
  - Rash generalised [Recovered/Resolved]
  - Lip erosion [Unknown]
